FAERS Safety Report 8305046-9 (Version None)
Quarter: 2012Q2

REPORT INFORMATION
  Report Type: 
  Country: None (occurrence: None)
  Receive Date: 20120404
  Receipt Date: 20120320
  Transmission Date: 20120825
  Serious: Yes (Hospitalization)
  Sender: FDA-Public Use
  Company Number: 2012PROUSA01201

PATIENT
  Age: 59 Year
  Sex: Male
  Weight: 107.9 kg

DRUGS (10)
  1. ADVAIR HFA (FLUTICASONE PROPIONATE, SALMETEROL XINAFOATE [Concomitant]
  2. DIOVAN [Concomitant]
  3. TRAMADOL + ACETAMINOFEN MK (PARACETAMOL, TRAMADOL HYDROCHLORIDE) [Concomitant]
  4. OMEPRAZOLE [Concomitant]
  5. PROVENGE [Suspect]
     Indication: PROSTATE CANCER METASTATIC
     Dosage: 250 ML, SINGLE, INTRAVENOUS
     Route: 042
     Dates: start: 20120316, end: 20120316
  6. CARDIZEM [Concomitant]
  7. FLOMAX [Concomitant]
  8. PROVENGE [Suspect]
     Indication: PROSTATE CANCER METASTATIC
     Dosage: 250 ML, SINGLE, INTRAVENOUS
     Route: 042
     Dates: start: 20120302, end: 20120302
  9. ZOLOFT [Concomitant]
  10. ZOCOR [Concomitant]

REACTIONS (5)
  - ATRIAL FIBRILLATION [None]
  - BLOOD PRESSURE INCREASED [None]
  - CARDIAC FAILURE CONGESTIVE [None]
  - BRONCHITIS [None]
  - ATRIAL SEPTAL DEFECT [None]
